FAERS Safety Report 10558511 (Version 2)
Quarter: 2014Q4

REPORT INFORMATION
  Report Type: Spontaneous
  Country: NO (occurrence: NO)
  Receive Date: 20141031
  Receipt Date: 20141031
  Transmission Date: 20150529
  Serious: Yes (Disabling)
  Sender: FDA-Public Use
  Company Number: NO-JNJFOC-20140917079

PATIENT
  Age: 49 Year
  Sex: Female
  Weight: 69 kg

DRUGS (10)
  1. LEVAXIN [Concomitant]
     Active Substance: LEVOTHYROXINE SODIUM
     Indication: HYPOMETABOLISM
     Route: 048
     Dates: start: 20100410
  2. SIMPONI [Suspect]
     Active Substance: GOLIMUMAB
     Indication: ANKYLOSING SPONDYLITIS
     Route: 058
     Dates: start: 20130626, end: 201311
  3. DERMOVAT [Concomitant]
     Active Substance: CLOBETASOL
     Indication: RASH PUSTULAR
     Route: 061
     Dates: start: 20101001
  4. SIMPONI [Suspect]
     Active Substance: GOLIMUMAB
     Indication: ANKYLOSING SPONDYLITIS
     Route: 058
     Dates: end: 20140626
  5. LIOTHYRONINE [Concomitant]
     Active Substance: LIOTHYRONINE
     Indication: HYPOMETABOLISM
     Route: 048
     Dates: start: 20130610
  6. SIMPONI [Suspect]
     Active Substance: GOLIMUMAB
     Indication: PSORIATIC ARTHROPATHY
     Route: 058
     Dates: start: 20130626, end: 201311
  7. BRUFEN RETARD [Concomitant]
     Active Substance: IBUPROFEN
     Indication: PSORIATIC ARTHROPATHY
     Route: 048
     Dates: start: 20130201
  8. BRUFEN RETARD [Concomitant]
     Active Substance: IBUPROFEN
     Indication: ANKYLOSING SPONDYLITIS
     Route: 048
     Dates: start: 20130201
  9. SIMPONI [Suspect]
     Active Substance: GOLIMUMAB
     Indication: PSORIATIC ARTHROPATHY
     Route: 058
     Dates: end: 20140626
  10. AERIUS [Concomitant]
     Active Substance: DESLORATADINE
     Indication: ALLERGY TO ARTHROPOD STING
     Route: 048
     Dates: start: 20050701

REACTIONS (6)
  - Feeling hot [Recovered/Resolved]
  - Multiple sclerosis [Not Recovered/Not Resolved]
  - Hyperaesthesia [Unknown]
  - Peripheral coldness [Unknown]
  - Sensory loss [Unknown]
  - Paraesthesia [Unknown]

NARRATIVE: CASE EVENT DATE: 201311
